FAERS Safety Report 10786133 (Version 2)
Quarter: 2015Q1

REPORT INFORMATION
  Report Type: Spontaneous
  Country: IE (occurrence: IE)
  Receive Date: 20150211
  Receipt Date: 20150212
  Transmission Date: 20150721
  Serious: Yes (Other)
  Sender: FDA-Public Use
  Company Number: IE-PFIZER INC-2015052573

PATIENT
  Age: 72 Year
  Sex: Female

DRUGS (2)
  1. CARBIMAZOLE [Suspect]
     Active Substance: CARBIMAZOLE
     Dosage: 60 MG, DAILY
  2. AMIODARONE HCL [Suspect]
     Active Substance: AMIODARONE HYDROCHLORIDE
     Dosage: UNK

REACTIONS (1)
  - Hyperthyroidism [Recovered/Resolved]
